FAERS Safety Report 20942524 (Version 1)
Quarter: 2022Q2

REPORT INFORMATION
  Report Type: Spontaneous
  Country: US (occurrence: US)
  Receive Date: 20220610
  Receipt Date: 20220610
  Transmission Date: 20220721
  Serious: No
  Sender: FDA-Public Use
  Company Number: US-JNJFOC-20220607465

PATIENT
  Age: 8 Year
  Sex: Male

DRUGS (1)
  1. CONCERTA [Suspect]
     Active Substance: METHYLPHENIDATE HYDROCHLORIDE
     Indication: Anger
     Route: 048
     Dates: start: 201102

REACTIONS (2)
  - Psychomotor hyperactivity [Unknown]
  - Off label use [Unknown]

NARRATIVE: CASE EVENT DATE: 20110201
